FAERS Safety Report 15871652 (Version 1)
Quarter: 2019Q1

REPORT INFORMATION
  Report Type: Spontaneous
  Country: US (occurrence: US)
  Receive Date: 20190126
  Receipt Date: 20190126
  Transmission Date: 20190417
  Serious: No
  Sender: FDA-Public Use
  Company Number: US-TEVA-2019-US-999543

PATIENT
  Age: 75 Year
  Sex: Male

DRUGS (2)
  1. PRAVASTATIN TABLET [Suspect]
     Active Substance: PRAVASTATIN
     Route: 065
  2. PRAVASTATIN TABLET [Suspect]
     Active Substance: PRAVASTATIN
     Route: 065

REACTIONS (1)
  - Eye allergy [Unknown]
